FAERS Safety Report 10352248 (Version 1)
Quarter: 2014Q3

REPORT INFORMATION
  Report Type: Spontaneous
  Country: US (occurrence: US)
  Receive Date: 20140730
  Receipt Date: 20140730
  Transmission Date: 20150326
  Serious: No
  Sender: FDA-Public Use
  Company Number: US-ABBVIE-14P-163-1186731-00

PATIENT
  Sex: Female
  Weight: 61.29 kg

DRUGS (1)
  1. SYNTHROID [Suspect]
     Active Substance: LEVOTHYROXINE SODIUM
     Indication: THYROID DISORDER

REACTIONS (5)
  - Malaise [Unknown]
  - Hair disorder [Unknown]
  - Vision blurred [Unknown]
  - Dry eye [Unknown]
  - Weight increased [Unknown]

NARRATIVE: CASE EVENT DATE: 2013
